FAERS Safety Report 6942789-3 (Version None)
Quarter: 2010Q3

REPORT INFORMATION
  Report Type: 
  Country: None (occurrence: None)
  Receive Date: 20100824
  Receipt Date: 20100824
  Transmission Date: 20110219
  Serious: Yes (Life-Threatening)
  Sender: FDA-Public Use
  Company Number: None

PATIENT
  Sex: Female

DRUGS (1)
  1. GAMMAGARD [Suspect]
     Indication: MULTIPLE SCLEROSIS
     Dosage: 10% 30G MONTHLY IV
     Route: 042
     Dates: start: 20100822

REACTIONS (2)
  - FURUNCLE [None]
  - URTICARIA [None]
